FAERS Safety Report 6320854-1 (Version None)
Quarter: 2009Q3

REPORT INFORMATION
  Report Type: 
  Country: None (occurrence: None)
  Receive Date: 20090822
  Receipt Date: 20081212
  Transmission Date: 20100115
  Serious: No
  Sender: FDA-Public Use
  Company Number: US-ABBOTT-08P-163-0492918-00

PATIENT
  Sex: Female
  Weight: 84.898 kg

DRUGS (9)
  1. NIASPAN [Suspect]
     Indication: LOW DENSITY LIPOPROTEIN INCREASED
     Route: 048
     Dates: start: 20070101
  2. NIASPAN [Suspect]
     Route: 048
     Dates: start: 20081112
  3. ATENOLOL [Concomitant]
     Indication: HYPERTENSION
     Route: 048
  4. HYDROCHLOROTHIAZIDE [Concomitant]
     Indication: HYPERTENSION
     Route: 048
  5. ALLEGRA [Concomitant]
     Indication: SEASONAL ALLERGY
  6. ALLEGRA [Concomitant]
     Indication: HYPERSENSITIVITY
  7. NASONEX [Concomitant]
     Indication: SEASONAL ALLERGY
     Dosage: 1 SPRAY EACH NOSTRIL
     Route: 045
  8. NASONEX [Concomitant]
     Indication: HYPERSENSITIVITY
  9. FLAXSEED [Concomitant]
     Indication: HOT FLUSH

REACTIONS (7)
  - BLOOD PRESSURE INCREASED [None]
  - DIZZINESS [None]
  - DRY SKIN [None]
  - DYSPEPSIA [None]
  - DYSPNOEA [None]
  - FLUSHING [None]
  - GASTROINTESTINAL DISORDER [None]
